FAERS Safety Report 4924525-5 (Version None)
Quarter: 2006Q1

REPORT INFORMATION
  Report Type: 
  Country: None (occurrence: None)
  Receive Date: 20060222
  Receipt Date: 20060213
  Transmission Date: 20060701
  Serious: Yes (Life-Threatening)
  Sender: FDA-Public Use
  Company Number: 2006-136637-NL

PATIENT
  Age: 36 Year
  Sex: 0

DRUGS (8)
  1. MIRTAZAPINE [Suspect]
  2. DICLOFENAC SODIUM [Concomitant]
  3. RANITIDINE [Concomitant]
  4. LOPERAMIDE HYDROCHLORIDE [Concomitant]
  5. LAMIVUDINE [Concomitant]
  6. ATAZANAVIR [Concomitant]
  7. RITONAVIR [Concomitant]
  8. EFAVIRENZ [Concomitant]

REACTIONS (5)
  - DRUG INEFFECTIVE [None]
  - MOOD ALTERED [None]
  - SLEEP DISORDER [None]
  - SUICIDAL IDEATION [None]
  - THERAPEUTIC RESPONSE UNEXPECTED WITH DRUG SUBSTITUTION [None]
